FAERS Safety Report 7986198-7 (Version None)
Quarter: 2011Q4

REPORT INFORMATION
  Report Type: 
  Country: None (occurrence: None)
  Receive Date: 20111216
  Receipt Date: 20111213
  Transmission Date: 20120403
  Serious: Yes (Death, Hospitalization)
  Sender: FDA-Public Use
  Company Number: US-GLAXOSMITHKLINE-A0957988A

PATIENT
  Age: 70 Year
  Sex: Male

DRUGS (12)
  1. METFORMIN HCL [Concomitant]
  2. PROCHLORPERAZINE [Concomitant]
  3. PROZAC [Concomitant]
  4. FENTANYL [Concomitant]
  5. GABAPENTIN [Concomitant]
  6. SIMVASTATIN [Concomitant]
  7. ARIXTRA [Suspect]
     Indication: PULMONARY EMBOLISM
     Dosage: 7.5MG PER DAY
     Route: 058
     Dates: start: 20110501
  8. PROTONIX [Concomitant]
  9. ENALAPRIL MALEATE [Concomitant]
  10. HYDROCODONE BITARTRATE [Concomitant]
  11. PANCREASE [Concomitant]
  12. MIRTAZAPINE [Concomitant]

REACTIONS (2)
  - PANCREATIC CARCINOMA [None]
  - PNEUMONIA [None]
